FAERS Safety Report 11447101 (Version 1)
Quarter: 2015Q3

REPORT INFORMATION
  Report Type: Spontaneous
  Country: US (occurrence: US)
  Receive Date: 20150831
  Receipt Date: 20150831
  Transmission Date: 20151125
  Serious: No
  Sender: FDA-Public Use
  Company Number: US-ELI_LILLY_AND_COMPANY-US200902004400

PATIENT
  Age: 40 Year
  Sex: Female

DRUGS (3)
  1. IRON PREPARATIONS [Concomitant]
     Active Substance: IRON
  2. VITAMINS, OTHER COMBINATIONS [Concomitant]
  3. CYMBALTA [Suspect]
     Active Substance: DULOXETINE HYDROCHLORIDE
     Indication: DEPRESSION
     Dosage: 90 MG, DAILY (1/D)
     Route: 048
     Dates: start: 2005, end: 20090210

REACTIONS (5)
  - Heart rate increased [Not Recovered/Not Resolved]
  - Iron deficiency anaemia [Not Recovered/Not Resolved]
  - Depression [Unknown]
  - Haemoglobin decreased [Unknown]
  - Crying [Not Recovered/Not Resolved]

NARRATIVE: CASE EVENT DATE: 200812
